FAERS Safety Report 20833869 (Version 1)
Quarter: 2022Q2

REPORT INFORMATION
  Report Type: Spontaneous
  Country: US (occurrence: None)
  Receive Date: 20220513
  Receipt Date: 20220513
  Transmission Date: 20220721
  Serious: Yes (Other)
  Sender: FDA-Public Use
  Company Number: None

PATIENT
  Age: 71 Year
  Sex: Female
  Weight: 76.5 kg

DRUGS (9)
  1. TOPIRAMATE [Suspect]
     Active Substance: TOPIRAMATE
     Indication: Product used for unknown indication
     Dosage: OTHER QUANTITY : 1 TABLET(S)?FREQUENCY : AT BEDTIME?
     Route: 048
     Dates: start: 20220509, end: 20220511
  2. MINOCYCLINE [Concomitant]
     Active Substance: MINOCYCLINE HYDROCHLORIDE
  3. SPIRONOLACTONE [Concomitant]
     Active Substance: SPIRONOLACTONE
  4. QUERCETIN [Concomitant]
     Active Substance: QUERCETIN
  5. HERBALS [Concomitant]
     Active Substance: HERBALS
  6. HERBALS [Concomitant]
     Active Substance: HERBALS
  7. MULTI-VITAMIN [Concomitant]
     Active Substance: .ALPHA.-TOCOPHEROL ACETATE, DL-\ASCORBIC ACID\CYANOCOBALAMIN\FLUORIDE ION\FOLIC ACID\NIACIN\PYRIDOXI
  8. ADEMETIONINE [Concomitant]
     Active Substance: ADEMETIONINE
  9. FISH OIL [Concomitant]
     Active Substance: FISH OIL

REACTIONS (4)
  - Heart rate decreased [None]
  - Fatigue [None]
  - Fatigue [None]
  - Dizziness [None]

NARRATIVE: CASE EVENT DATE: 20220512
